FAERS Safety Report 16806566 (Version 1)
Quarter: 2019Q3

REPORT INFORMATION
  Report Type: Spontaneous
  Country: US (occurrence: US)
  Receive Date: 20190913
  Receipt Date: 20190913
  Transmission Date: 20191005
  Serious: No
  Sender: FDA-Public Use
  Company Number: US-SA-2019SA226035

PATIENT
  Sex: Female

DRUGS (1)
  1. ZANTAC 75 [Suspect]
     Active Substance: RANITIDINE HYDROCHLORIDE
     Dosage: 2 DF, QD (IN THE MORNING BEFORE BREAKFAST AND IN THE EVENING AFTER EATING)
     Route: 065

REACTIONS (2)
  - Muscle spasms [Unknown]
  - Unevaluable event [Unknown]
